FAERS Safety Report 22398556 (Version 1)
Quarter: 2023Q2

REPORT INFORMATION
  Report Type: Spontaneous
  Country: JP (occurrence: JP)
  Receive Date: 20230602
  Receipt Date: 20230602
  Transmission Date: 20230722
  Serious: Yes (Life-Threatening, Other)
  Sender: FDA-Public Use
  Company Number: JP-GLAXOSMITHKLINE-JP2023JPN076114

PATIENT

DRUGS (13)
  1. VALACYCLOVIR HYDROCHLORIDE [Suspect]
     Active Substance: VALACYCLOVIR HYDROCHLORIDE
     Indication: Herpes zoster
     Dosage: 1000 MG, TID
     Route: 048
     Dates: start: 20230424, end: 20230427
  2. TARLIGE TABLETS [Concomitant]
     Indication: Herpes zoster
     Dosage: UNK
     Route: 048
     Dates: start: 20230424, end: 20230427
  3. GENTAMICIN SULFATE OINTMENT [Concomitant]
     Dosage: UNK
     Dates: start: 20230424
  4. VONOPRAZAN FUMARATE [Concomitant]
     Active Substance: VONOPRAZAN FUMARATE
     Dosage: UNK
     Route: 048
  5. OLOPATADINE HYDROCHLORIDE [Concomitant]
     Active Substance: OLOPATADINE HYDROCHLORIDE
     Dosage: UNK
     Route: 048
  6. AMBROXOL HYDROCHLORIDE TABLETS [Concomitant]
     Dosage: UNK
     Route: 048
  7. CARBOCYSTEINE [Concomitant]
     Active Substance: CARBOCYSTEINE
     Dosage: UNK
     Route: 048
  8. MAGNESIUM OXIDE [Concomitant]
     Active Substance: MAGNESIUM OXIDE
     Dosage: UNK
     Route: 048
  9. FLUTICASONE PROPIONATE\FORMOTEROL FUMARATE [Concomitant]
     Active Substance: FLUTICASONE PROPIONATE\FORMOTEROL FUMARATE
     Dosage: UNK
     Route: 055
  10. CALONAL [Concomitant]
     Active Substance: ACETAMINOPHEN
     Dosage: UNK
     Route: 048
  11. LUDIOMIL [Concomitant]
     Active Substance: MAPROTILINE HYDROCHLORIDE
     Dosage: UNK
     Route: 048
  12. DONEPEZIL HYDROCHLORIDE [Concomitant]
     Active Substance: DONEPEZIL HYDROCHLORIDE
     Dosage: UNK
     Route: 048
  13. BENIDIPINE HYDROCHLORIDE [Concomitant]
     Active Substance: BENIDIPINE HYDROCHLORIDE
     Dosage: UNK
     Route: 048

REACTIONS (10)
  - Renal impairment [Recovering/Resolving]
  - Encephalopathy [Recovering/Resolving]
  - Hypoxia [Unknown]
  - Altered state of consciousness [Recovering/Resolving]
  - Atypical mycobacterial infection [Unknown]
  - Pneumonia bacterial [Unknown]
  - Pneumonia aspiration [Unknown]
  - Pyrexia [Unknown]
  - Condition aggravated [Unknown]
  - Drug level increased [Unknown]

NARRATIVE: CASE EVENT DATE: 20230425
